FAERS Safety Report 6193253-3 (Version None)
Quarter: 2009Q2

REPORT INFORMATION
  Report Type: 
  Country: None (occurrence: None)
  Receive Date: 20090518
  Receipt Date: 20090508
  Transmission Date: 20091009
  Serious: Yes (Hospitalization)
  Sender: FDA-Public Use
  Company Number: A0784457A

PATIENT
  Age: 66 Year
  Sex: Male
  Weight: 113.2 kg

DRUGS (4)
  1. AVANDIA [Suspect]
     Dosage: 2MG SINGLE DOSE
     Route: 048
     Dates: start: 20040303, end: 20071001
  2. GLYBURIDE [Concomitant]
     Dates: start: 20010901, end: 20090101
  3. METFORMIN HCL [Concomitant]
     Dates: start: 20020201, end: 20090101
  4. DIABETA [Concomitant]
     Dates: start: 20000901, end: 20080301

REACTIONS (4)
  - CARDIAC FAILURE CONGESTIVE [None]
  - CORONARY ARTERY DISEASE [None]
  - MYOCARDIAL INFARCTION [None]
  - QUALITY OF LIFE DECREASED [None]
